FAERS Safety Report 12281215 (Version 2)
Quarter: 2016Q2

REPORT INFORMATION
  Report Type: Report from Study
  Country: US (occurrence: US)
  Receive Date: 20160419
  Receipt Date: 20160520
  Transmission Date: 20160815
  Serious: Yes (Hospitalization, Other)
  Sender: FDA-Public Use
  Company Number: US-GILEAD-2016-0208779

PATIENT
  Age: 25 Year
  Sex: Male
  Weight: 83.45 kg

DRUGS (2)
  1. AMBRISENTAN [Suspect]
     Active Substance: AMBRISENTAN
     Indication: PULMONARY HYPERTENSION
     Dosage: 10 MG, UNK
     Route: 065
     Dates: start: 20090401
  2. AMBRISENTAN [Suspect]
     Active Substance: AMBRISENTAN
     Indication: AORTIC DISSECTION

REACTIONS (3)
  - Treatment noncompliance [Recovered/Resolved]
  - Pulmonary hypertension [Unknown]
  - Hypoxia [Unknown]

NARRATIVE: CASE EVENT DATE: 20160227
